FAERS Safety Report 16811597 (Version 2)
Quarter: 2019Q4

REPORT INFORMATION
  Report Type: Spontaneous
  Country: LT (occurrence: LT)
  Receive Date: 20190916
  Receipt Date: 20191011
  Transmission Date: 20200122
  Serious: Yes (Life-Threatening, Hospitalization)
  Sender: FDA-Public Use
  Company Number: LT-ELI_LILLY_AND_COMPANY-LT201909006753

PATIENT
  Age: 62 Year

DRUGS (3)
  1. 5-FU [FLUOROURACIL] [Concomitant]
     Active Substance: FLUOROURACIL
     Indication: LIP AND/OR ORAL CAVITY CANCER
  2. ERBITUX [Suspect]
     Active Substance: CETUXIMAB
     Indication: LIP AND/OR ORAL CAVITY CANCER
     Dosage: 100 MG, UNK
     Route: 065
     Dates: start: 2019, end: 20190822
  3. CISPLATIN. [Concomitant]
     Active Substance: CISPLATIN
     Indication: LIP AND/OR ORAL CAVITY CANCER

REACTIONS (5)
  - Hypotension [Unknown]
  - Asphyxia [Unknown]
  - Dyspnoea [Unknown]
  - Loss of consciousness [Unknown]
  - Wheezing [Unknown]

NARRATIVE: CASE EVENT DATE: 20190822
